FAERS Safety Report 5672926-2 (Version None)
Quarter: 2008Q1

REPORT INFORMATION
  Report Type: 
  Country: None (occurrence: None)
  Receive Date: 20080319
  Receipt Date: 20071218
  Transmission Date: 20080703
  Serious: No
  Sender: FDA-Public Use
  Company Number: US-ASTRAZENECA-2007UW28618

PATIENT
  Age: 77 Year
  Sex: Female
  Weight: 62.6 kg

DRUGS (5)
  1. SYMBICORT [Suspect]
     Dosage: 160/4.5 UG TWO PUFFS BID
     Route: 055
     Dates: start: 20071101
  2. DETROL [Concomitant]
  3. EVISTA [Concomitant]
  4. VYTORIN [Concomitant]
  5. BIDEX [Concomitant]

REACTIONS (2)
  - DYSPHONIA [None]
  - MEMORY IMPAIRMENT [None]
